FAERS Safety Report 21689833 (Version 1)
Quarter: 2022Q4

REPORT INFORMATION
  Report Type: Spontaneous
  Country: US (occurrence: None)
  Receive Date: 20221205
  Receipt Date: 20221205
  Transmission Date: 20230112
  Serious: No
  Sender: FDA-Public Use
  Company Number: None

PATIENT
  Sex: Male

DRUGS (1)
  1. CAPECITABINE [Suspect]
     Active Substance: CAPECITABINE
     Dosage: 1500 MG BID ORAL
     Route: 048

REACTIONS (5)
  - Constipation [None]
  - Gastrooesophageal reflux disease [None]
  - Diarrhoea [None]
  - Neuropathy peripheral [None]
  - Intestinal stent insertion [None]
